FAERS Safety Report 14753724 (Version 3)
Quarter: 2018Q2

REPORT INFORMATION
  Report Type: Report from Study
  Country: ES (occurrence: ES)
  Receive Date: 20180412
  Receipt Date: 20180425
  Transmission Date: 20180711
  Serious: Yes (Hospitalization)
  Sender: FDA-Public Use
  Company Number: ES-PFIZER INC-2018142246

PATIENT
  Age: 82 Year
  Sex: Male

DRUGS (4)
  1. IVABRADINE [Suspect]
     Active Substance: IVABRADINE
     Dosage: 5 MG, 2X/DAY
     Route: 048
     Dates: start: 20131011, end: 20131111
  2. EPLERENONE. [Suspect]
     Active Substance: EPLERENONE
     Dosage: 25 MG, ALTERNATE DAY (EVERY 48 HOURS)
     Route: 048
     Dates: start: 20131011, end: 20131111
  3. FUROSEMIDE. [Suspect]
     Active Substance: FUROSEMIDE
     Dosage: 40 MG, 3X/DAY
     Route: 048
     Dates: start: 20131011, end: 20131111
  4. HYGROTON [Suspect]
     Active Substance: CHLORTHALIDONE
     Dosage: 25 MG, ALTERNATE DAY, EVERY 48 HOURS
     Route: 048
     Dates: start: 2013, end: 20131111

REACTIONS (2)
  - Condition aggravated [Recovered/Resolved]
  - Chronic kidney disease [Recovered/Resolved]

NARRATIVE: CASE EVENT DATE: 20131111
